FAERS Safety Report 8295711-4 (Version None)
Quarter: 2012Q2

REPORT INFORMATION
  Report Type: 
  Country: None (occurrence: None)
  Receive Date: 20120416
  Receipt Date: 20120405
  Transmission Date: 20120825
  Serious: Yes (Other)
  Sender: FDA-Public Use
  Company Number: 217158

PATIENT
  Age: 28 Year
  Sex: Male
  Weight: 130 kg

DRUGS (1)
  1. INNOHEP [Suspect]
     Indication: POSTOPERATIVE CARE
     Dosage: 4500 IU (1 IN 1 D),SUBCUTANEOUS
     Route: 058
     Dates: start: 20120301, end: 20120401

REACTIONS (2)
  - THROMBOSIS [None]
  - DRUG INEFFECTIVE [None]
